FAERS Safety Report 21418733 (Version 2)
Quarter: 2022Q4

REPORT INFORMATION
  Report Type: Report from Study
  Country: IN (occurrence: IN)
  Receive Date: 20221006
  Receipt Date: 20221219
  Transmission Date: 20230113
  Serious: Yes (Hospitalization, Other)
  Sender: FDA-Public Use
  Company Number: IN-TAKEDA-2022TUS002226

PATIENT
  Sex: Male

DRUGS (1)
  1. VEDOLIZUMAB [Suspect]
     Active Substance: VEDOLIZUMAB
     Indication: Crohn^s disease
     Dosage: 300 MILLIGRAM
     Route: 042
     Dates: start: 20210807

REACTIONS (6)
  - Oesophageal stenosis [Unknown]
  - Abdominal pain [Recovered/Resolved]
  - Malaise [Unknown]
  - COVID-19 [Unknown]
  - Pyrexia [Unknown]
  - Inappropriate schedule of product administration [Unknown]
